FAERS Safety Report 10222840 (Version 1)
Quarter: 2014Q2

REPORT INFORMATION
  Report Type: Spontaneous
  Country: IT (occurrence: IT)
  Receive Date: 20140606
  Receipt Date: 20140606
  Transmission Date: 20141212
  Serious: Yes (Death, Other)
  Sender: FDA-Public Use
  Company Number: IT-CELGENEUS-083-21880-14054835

PATIENT
  Age: 71 Year
  Sex: Female

DRUGS (2)
  1. REVLIMID [Suspect]
     Indication: MANTLE CELL LYMPHOMA REFRACTORY
     Dosage: 10 MILLIGRAM
     Route: 048
     Dates: start: 20140319
  2. REVLIMID [Suspect]
     Indication: OFF LABEL USE
     Route: 048
     Dates: end: 20140515

REACTIONS (4)
  - Convulsion [Unknown]
  - Septic shock [Recovered/Resolved]
  - Renal failure acute [Unknown]
  - Mantle cell lymphoma [Fatal]
